FAERS Safety Report 25238867 (Version 2)
Quarter: 2025Q2

REPORT INFORMATION
  Report Type: Report from Study
  Country: US (occurrence: US)
  Receive Date: 20250425
  Receipt Date: 20250501
  Transmission Date: 20250716
  Serious: Yes (Hospitalization)
  Sender: BAYER HEALTHCARE PHARMACEUTICALS INC.
  Company Number: US-BAYER-2025A055778

PATIENT
  Age: 66 Year
  Sex: Male
  Weight: 62.585 kg

DRUGS (26)
  1. ADEMPAS [Suspect]
     Active Substance: RIOCIGUAT
     Indication: Pulmonary arterial hypertension
     Route: 048
     Dates: start: 20250102
  2. ADEMPAS [Suspect]
     Active Substance: RIOCIGUAT
     Indication: Pulmonary arterial hypertension
     Dosage: 2.5 MG, TID
     Route: 048
  3. ATORVASTATIN CALCIUM [Concomitant]
     Active Substance: ATORVASTATIN CALCIUM
  4. TYVASO DPI [Concomitant]
     Active Substance: TREPROSTINIL
  5. LEVOCETIRIZINE DIHYDROCHLORIDE [Concomitant]
     Active Substance: LEVOCETIRIZINE DIHYDROCHLORIDE
  6. WARFARIN SODIUM [Concomitant]
     Active Substance: WARFARIN SODIUM
  7. TAMSULOSIN HYDROCHLORIDE [Concomitant]
     Active Substance: TAMSULOSIN HYDROCHLORIDE
  8. FLUTICASONE PROPIONATE [Concomitant]
     Active Substance: FLUTICASONE PROPIONATE
  9. ANTI DIARRHEAL [Concomitant]
     Active Substance: LOPERAMIDE HYDROCHLORIDE
  10. ALLOPURINOL [Concomitant]
     Active Substance: ALLOPURINOL
  11. LORAZEPAM [Concomitant]
     Active Substance: LORAZEPAM
  12. TRACLEER [Concomitant]
     Active Substance: BOSENTAN
  13. CHOLECALCIFEROL [Concomitant]
     Active Substance: CHOLECALCIFEROL
  14. WINREVAIR [Concomitant]
     Active Substance: SOTATERCEPT-CSRK
  15. MAGNESIUM [Concomitant]
     Active Substance: MAGNESIUM
  16. VITAMINS [Concomitant]
     Active Substance: VITAMINS
  17. OXYGEN [Concomitant]
     Active Substance: OXYGEN
  18. FUROSEMIDE [Concomitant]
     Active Substance: FUROSEMIDE
  19. BOSENTAN [Concomitant]
     Active Substance: BOSENTAN
  20. SHINGRIX [Concomitant]
     Active Substance: RECOMBINANT VARICELLA ZOSTER VIRUS (VZV) GLYCOPROTEIN E
  21. DIGOXIN [Concomitant]
     Active Substance: DIGOXIN
  22. VITAMIN D3 [Concomitant]
     Active Substance: CHOLECALCIFEROL
  23. SORE THROAT [Concomitant]
     Active Substance: HOMEOPATHICS
  24. LOPERAMIDE [Concomitant]
     Active Substance: LOPERAMIDE
  25. EPCLUSA [Concomitant]
     Active Substance: SOFOSBUVIR\VELPATASVIR
  26. ENTRESTO [Concomitant]
     Active Substance: SACUBITRIL\VALSARTAN

REACTIONS (3)
  - Gastrointestinal disorder [None]
  - Intestinal obstruction [Recovered/Resolved]
  - Product dose omission issue [None]

NARRATIVE: CASE EVENT DATE: 20250101
